FAERS Safety Report 8588189 (Version 2)
Quarter: 2012Q4

REPORT INFORMATION
  Report Type: 
  Country: BR (occurrence: BR)
  Receive Date: 20120531
  Receipt Date: 20121105
  Transmission Date: 20130627
  Serious: Yes (Life-Threatening, Hospitalization, Other)
  Sender: FDA-Public Use
  Company Number: BR-ASTRAZENECA-2012SE33510

PATIENT
  Age: 53 Year
  Sex: Female

DRUGS (4)
  1. SYMBICORT TURBUHALER [Suspect]
     Indication: ALLERGIC BRONCHITIS
     Dosage: 160/4.5 MCG, UNKNOWN
     Route: 055
  2. SYMBICORT TURBUHALER [Suspect]
     Indication: ASTHMA
     Dosage: 160/4.5 MCG, UNKNOWN
     Route: 055
  3. SYMBICORT TURBUHALER [Suspect]
     Indication: ALLERGIC BRONCHITIS
     Dosage: 320/9 MCG, UNKNOWN
     Route: 055
  4. SYMBICORT TURBUHALER [Suspect]
     Indication: ASTHMA
     Dosage: 320/9 MCG, UNKNOWN
     Route: 055

REACTIONS (6)
  - Cardio-respiratory arrest [Recovered/Resolved]
  - Brain hypoxia [Recovered/Resolved]
  - Brain oedema [Recovered/Resolved]
  - Asthma [Recovered/Resolved]
  - Amnesia [Recovered/Resolved]
  - Speech disorder [Recovered/Resolved]
